FAERS Safety Report 26209614 (Version 2)
Quarter: 2025Q4

REPORT INFORMATION
  Report Type: Spontaneous
  Country: HN (occurrence: HN)
  Receive Date: 20251229
  Receipt Date: 20251230
  Transmission Date: 20260117
  Serious: Yes (Other)
  Sender: NOVARTIS
  Company Number: HN-002147023-NVSC2025HN196629

PATIENT
  Sex: Female

DRUGS (1)
  1. GLIVEC [Suspect]
     Active Substance: IMATINIB MESYLATE
     Indication: Chronic myeloid leukaemia
     Dosage: 400 MG, (1 X 400 MG)
     Route: 065

REACTIONS (4)
  - Diabetes mellitus [Unknown]
  - Hypertension [Unknown]
  - Thyroid disorder [Unknown]
  - Cognitive disorder [Unknown]
